FAERS Safety Report 10253161 (Version 1)
Quarter: 2014Q2

REPORT INFORMATION
  Report Type: Spontaneous
  Country: AU (occurrence: AU)
  Receive Date: 20140623
  Receipt Date: 20140623
  Transmission Date: 20141212
  Serious: Yes (Other)
  Sender: FDA-Public Use
  Company Number: AU-GLAXOSMITHKLINE-B1005969A

PATIENT
  Age: 74 Year
  Sex: Male

DRUGS (2)
  1. DABRAFENIB [Suspect]
     Indication: MALIGNANT MELANOMA
     Dosage: 150MG TWICE PER DAY
     Route: 065
     Dates: start: 20130308
  2. TRAMETINIB [Suspect]
     Indication: PRODUCT USED FOR UNKNOWN INDICATION
     Dosage: 2MG PER DAY
     Route: 065
     Dates: start: 20130808

REACTIONS (2)
  - Basal cell carcinoma [Recovered/Resolved]
  - Superficial spreading melanoma stage unspecified [Recovered/Resolved]
